FAERS Safety Report 5637300-3 (Version None)
Quarter: 2008Q1

REPORT INFORMATION
  Report Type: 
  Country: None (occurrence: None)
  Receive Date: 20080225
  Receipt Date: 20080214
  Transmission Date: 20080703
  Serious: Yes (Hospitalization)
  Sender: FDA-Public Use
  Company Number: JP-PFIZER INC-2008015013

PATIENT
  Age: 82 Year
  Sex: Female

DRUGS (7)
  1. LIPITOR [Suspect]
     Indication: HYPERLIPIDAEMIA
     Route: 048
  2. THYRADIN [Suspect]
     Indication: HYPOTHYROIDISM
     Route: 048
  3. VALSARTAN [Concomitant]
     Route: 048
     Dates: start: 20070220, end: 20080201
  4. FLUVOXAMINE MALEATE [Concomitant]
     Route: 048
     Dates: start: 20070220, end: 20080201
  5. GASMOTIN [Concomitant]
     Route: 048
  6. SELBEX [Concomitant]
     Route: 048
  7. DEPAS [Concomitant]
     Route: 048

REACTIONS (4)
  - DELIRIUM [None]
  - HEPATIC FUNCTION ABNORMAL [None]
  - PNEUMONIA [None]
  - RHABDOMYOLYSIS [None]
